FAERS Safety Report 5660827-5 (Version None)
Quarter: 2008Q1

REPORT INFORMATION
  Report Type: 
  Country: None (occurrence: None)
  Receive Date: 20080311
  Receipt Date: 20080229
  Transmission Date: 20080703
  Serious: Yes (Hospitalization)
  Sender: FDA-Public Use
  Company Number: HQWYE085110SEP07

PATIENT
  Age: 49 Year
  Sex: Female
  Weight: 61.1 kg

DRUGS (3)
  1. MYLOTARG [Suspect]
     Indication: ACUTE MYELOID LEUKAEMIA
     Dosage: 6 MG/M2 (9 MG TOTAL DOSE ADMINISTERED)
     Route: 042
     Dates: start: 20070405, end: 20070405
  2. DAUNOMYCIN [Suspect]
     Indication: ACUTE MYELOID LEUKAEMIA
     Dosage: 45 MG/M2 (213 MG TOTAL DOSE ADMINISTERED)
     Route: 042
     Dates: start: 20070402, end: 20070404
  3. CYTARABINE [Suspect]
     Indication: ACUTE MYELOID LEUKAEMIA
     Dosage: 100 MG/M2 (1099 MG TOTAL DOSE ADMINISTERED)
     Route: 042
     Dates: start: 20070402, end: 20070408

REACTIONS (2)
  - LIVER DISORDER [None]
  - VENOOCCLUSIVE LIVER DISEASE [None]
